FAERS Safety Report 24880628 (Version 2)
Quarter: 2025Q3

REPORT INFORMATION
  Report Type: Report from Study
  Country: US (occurrence: US)
  Receive Date: 20250123
  Receipt Date: 20250809
  Transmission Date: 20251020
  Serious: Yes (Hospitalization, Other)
  Sender: ALEXION PHARMACEUTICALS
  Company Number: US-AstraZeneca-CH-00789971A

PATIENT
  Sex: Male

DRUGS (1)
  1. OSIMERTINIB [Suspect]
     Active Substance: OSIMERTINIB
     Dosage: 80 MILLIGRAM, QD
     Route: 065

REACTIONS (9)
  - Cardiac failure [Unknown]
  - Delirium [Unknown]
  - Road traffic accident [Unknown]
  - Off label use [Unknown]
  - Intentional product misuse [Unknown]
  - Blood sodium decreased [Unknown]
  - Asthenia [Unknown]
  - Rash [Unknown]
  - Heart rate increased [Unknown]
